FAERS Safety Report 10467685 (Version 2)
Quarter: 2014Q4

REPORT INFORMATION
  Report Type: Spontaneous
  Country: JP (occurrence: JP)
  Receive Date: 20140922
  Receipt Date: 20141009
  Transmission Date: 20150528
  Serious: Yes (Death, Other)
  Sender: FDA-Public Use
  Company Number: JP-GLAXOSMITHKLINE-B1035070A

PATIENT
  Age: 80 Year
  Sex: Female

DRUGS (2)
  1. PAZOPANIB [Suspect]
     Active Substance: PAZOPANIB
     Indication: ANGIOSARCOMA
     Route: 048
     Dates: start: 20130927, end: 20140120
  2. PAZOPANIB [Suspect]
     Active Substance: PAZOPANIB
     Indication: ANGIOSARCOMA
     Route: 048
     Dates: start: 20140121

REACTIONS (4)
  - Platelet count decreased [Recovered/Resolved]
  - Blood pressure increased [Recovering/Resolving]
  - Pleural effusion [Unknown]
  - Angiosarcoma [Fatal]

NARRATIVE: CASE EVENT DATE: 20130928
